FAERS Safety Report 11403674 (Version 1)
Quarter: 2015Q3

REPORT INFORMATION
  Report Type: Report from Study
  Country: ES (occurrence: ES)
  Receive Date: 20150821
  Receipt Date: 20150821
  Transmission Date: 20151125
  Serious: Yes (Death)
  Sender: FDA-Public Use
  Company Number: ES-SA-2015SA126283

PATIENT

DRUGS (4)
  1. SULMETIN [Concomitant]
     Indication: FLUID OVERLOAD
     Dosage: 10 ML OVER 1 HR, (1 L OF 0.9% NACL,10 MEQ KCL, MG SULFATE), GIVEN BEFORE AND AFTER CHEMOTHERAPY
     Route: 042
  2. DEXAMETHASONE. [Concomitant]
     Active Substance: DEXAMETHASONE
     Dosage: ADMINSITERED 12 AND 6 HRS BEFORE DOCETAXEL INFUSION, ORAL OR IV
  3. CISPLATIN. [Suspect]
     Active Substance: CISPLATIN
     Indication: GASTRIC CANCER
     Dosage: OVER 1 HOUR ON DAY1, DILUTED IN 500 CC OF NORMAL SALINE ALONGWITH 50 CC OF MANITOL
     Route: 042
  4. DOCETAXEL. [Suspect]
     Active Substance: DOCETAXEL
     Indication: GASTRIC CANCER
     Route: 042

REACTIONS (2)
  - Neutropenia [Fatal]
  - Thrombocytopenia [Fatal]
